FAERS Safety Report 11829615 (Version 1)
Quarter: 2015Q4

REPORT INFORMATION
  Report Type: Spontaneous
  Country: US (occurrence: US)
  Receive Date: 20151212
  Receipt Date: 20151212
  Transmission Date: 20160305
  Serious: No
  Sender: FDA-Public Use
  Company Number: US-B.I. PHARMACEUTICALS,INC./RIDGEFIELD-2015-BI-67257BP

PATIENT
  Age: 79 Year
  Sex: Female
  Weight: 67 kg

DRUGS (3)
  1. ZANTAC [Suspect]
     Active Substance: RANITIDINE HYDROCHLORIDE
     Indication: CHEST PAIN
     Dosage: 300 MG
     Route: 048
     Dates: start: 20151124, end: 20151129
  2. FLOVENT [Concomitant]
     Active Substance: FLUTICASONE PROPIONATE
     Indication: ASTHMA
     Route: 065
  3. LEVOTHYROXINE. [Concomitant]
     Active Substance: LEVOTHYROXINE
     Indication: PRODUCT USED FOR UNKNOWN INDICATION
     Route: 065

REACTIONS (2)
  - Headache [Not Recovered/Not Resolved]
  - Constipation [Not Recovered/Not Resolved]

NARRATIVE: CASE EVENT DATE: 20151125
